FAERS Safety Report 11755954 (Version 1)
Quarter: 2015Q4

REPORT INFORMATION
  Report Type: Spontaneous
  Country: US (occurrence: US)
  Receive Date: 20151119
  Receipt Date: 20151119
  Transmission Date: 20160304
  Serious: No
  Sender: FDA-Public Use
  Company Number: US-ALLERGAN-1423088US

PATIENT
  Sex: Female

DRUGS (3)
  1. LATANOPROST. [Concomitant]
     Active Substance: LATANOPROST
     Indication: GLAUCOMA
     Dosage: UNK
  2. VITAMINS [Concomitant]
     Active Substance: VITAMINS
     Indication: SUPPLEMENTATION THERAPY
     Dosage: UNK
  3. ALPHAGAN P [Suspect]
     Active Substance: BRIMONIDINE TARTRATE
     Indication: GLAUCOMA
     Dosage: 2 GTT, BID
     Route: 047

REACTIONS (5)
  - Sneezing [Recovered/Resolved]
  - Inappropriate schedule of drug administration [Unknown]
  - Foreign body sensation in eyes [Recovered/Resolved]
  - Rhinorrhoea [Recovered/Resolved]
  - Photosensitivity reaction [Recovered/Resolved]
